FAERS Safety Report 9216384 (Version 2)
Quarter: 2013Q2

REPORT INFORMATION
  Report Type: Report from Study
  Country: BR (occurrence: BR)
  Receive Date: 20130408
  Receipt Date: 20130612
  Transmission Date: 20140414
  Serious: Yes (Death, Life-Threatening, Hospitalization)
  Sender: FDA-Public Use
  Company Number: PHHY2013BR033454

PATIENT
  Sex: Male

DRUGS (2)
  1. DIOVAN HCT [Suspect]
     Indication: BLOOD PRESSURE ABNORMAL
     Dosage: 2 DF, (VALS 320 MG,HCT 12.5 MG) DAILY
  2. INSULIN [Concomitant]
     Indication: DIABETES MELLITUS
     Dosage: 3 IU, DAILY
     Dates: start: 2000

REACTIONS (4)
  - Infection [Fatal]
  - Sepsis [Fatal]
  - Pain [Not Recovered/Not Resolved]
  - Incorrect dose administered [Unknown]
